FAERS Safety Report 21284770 (Version 1)
Quarter: 2022Q3

REPORT INFORMATION
  Report Type: Spontaneous
  Country: US (occurrence: US)
  Receive Date: 20220902
  Receipt Date: 20220902
  Transmission Date: 20221026
  Serious: Yes (Hospitalization)
  Sender: FDA-Public Use
  Company Number: ENDG21-04951

PATIENT
  Sex: Female
  Weight: 48.08 kg

DRUGS (8)
  1. PREDNISONE [Suspect]
     Active Substance: PREDNISONE
     Indication: Urticaria
     Dosage: 10 MG TABLET, UNKNOWN
     Route: 065
     Dates: start: 20210416
  2. PREDNISONE [Suspect]
     Active Substance: PREDNISONE
     Dosage: 40 MG, UNKNOWN, TAPER
     Route: 065
     Dates: start: 20210419, end: 20210425
  3. PREDNISONE [Suspect]
     Active Substance: PREDNISONE
     Dosage: 30 MG, UNKNOWN, TAPER
     Route: 065
     Dates: start: 20210426, end: 2021
  4. PREDNISONE [Suspect]
     Active Substance: PREDNISONE
     Dosage: 20 MG, UNKNOWN, TAPER
     Route: 065
     Dates: start: 2021, end: 2021
  5. PREDNISONE [Suspect]
     Active Substance: PREDNISONE
     Dosage: 10 MG, UNKNOWN, TAPER
     Route: 065
     Dates: start: 2021
  6. PREDNISONE [Concomitant]
     Active Substance: PREDNISONE
     Indication: Urticaria
     Dosage: UNK UNKNOWN, UNKNOWN
     Route: 042
     Dates: start: 20210418, end: 20210418
  7. PREDNISONE [Concomitant]
     Active Substance: PREDNISONE
     Dosage: UNK UNKNOWN, UNKNOWN (PREDNISONE SHOT)
     Route: 065
     Dates: start: 20210415, end: 20210415
  8. SYNTHROID [Concomitant]
     Active Substance: LEVOTHYROXINE SODIUM
     Indication: Product used for unknown indication
     Dosage: 0.88 MCG, DAILY
     Route: 065

REACTIONS (2)
  - Psychotic disorder [Unknown]
  - Cognitive disorder [Unknown]

NARRATIVE: CASE EVENT DATE: 20210101
